FAERS Safety Report 7469044-X (Version None)
Quarter: 2011Q2

REPORT INFORMATION
  Report Type: 
  Country: None (occurrence: None)
  Receive Date: 20110429
  Receipt Date: 20110418
  Transmission Date: 20111010
  Serious: Yes (Hospitalization)
  Sender: FDA-Public Use
  Company Number: 2010SP004575

PATIENT
  Age: 25 Year
  Sex: Female
  Weight: 104.3273 kg

DRUGS (1)
  1. NUVARING [Suspect]
     Indication: CONTRACEPTION
     Dates: start: 20080925, end: 20081001

REACTIONS (9)
  - INJECTION SITE ANAESTHESIA [None]
  - BLOOD PRESSURE INADEQUATELY CONTROLLED [None]
  - PAIN [None]
  - WALKING AID USER [None]
  - MIGRAINE [None]
  - INJECTION SITE PAIN [None]
  - DEEP VEIN THROMBOSIS [None]
  - PULMONARY EMBOLISM [None]
  - DEPRESSION [None]
